FAERS Safety Report 8360297-2 (Version None)
Quarter: 2012Q1

REPORT INFORMATION
  Report Type: 
  Country: None (occurrence: None)
  Receive Date: 20120323
  Receipt Date: 20111205
  Transmission Date: 20120608
  Serious: Yes (Disabling)
  Sender: FDA-Public Use
  Company Number: 163-21880-11091577

PATIENT
  Age: 84 Year
  Sex: Female
  Weight: 44.4525 kg

DRUGS (9)
  1. VITAMIN B6 (PYRIDOXINE HYDROHCLORIDE) [Concomitant]
  2. LORTAB [Concomitant]
  3. LIBRAX [Concomitant]
  4. DURAGESIC (FENTANYL) (POULTICE OR PATCH) [Concomitant]
  5. ASPIRIN [Concomitant]
  6. PLAVIX [Concomitant]
  7. PERCOCET [Concomitant]
  8. REVLIMID [Suspect]
     Indication: MULTIPLE MYELOMA
     Dosage: 5 MG, 5 DAYS A WEEK, PO
     Route: 048
     Dates: start: 20080101
  9. FENTANYL DIS (FENTANYL) [Concomitant]

REACTIONS (3)
  - DIZZINESS [None]
  - FATIGUE [None]
  - WEIGHT DECREASED [None]
